FAERS Safety Report 17306054 (Version 1)
Quarter: 2020Q1

REPORT INFORMATION
  Report Type: Spontaneous
  Country: FR (occurrence: FR)
  Receive Date: 20200123
  Receipt Date: 20200123
  Transmission Date: 20200409
  Serious: Yes (Hospitalization)
  Sender: FDA-Public Use
  Company Number: FR-TEVA-2020-FR-1171354

PATIENT
  Age: 72 Year
  Sex: Male
  Weight: 87.6 kg

DRUGS (11)
  1. IRINOTECAN [Suspect]
     Active Substance: IRINOTECAN
     Dosage: FOLFIRINOX PROTOCOL, 180 MG/M2/D TO D1
     Route: 041
     Dates: start: 20191121, end: 20191121
  2. FLUOROURACIL. [Suspect]
     Active Substance: FLUOROURACIL
     Indication: DUCTAL ADENOCARCINOMA OF PANCREAS
     Dosage: FOLFIRINOX PROTOCOL, BOLUS AT J1 400 MG/M2 IN 2 HOURS THEN 1200 MG/M2/D OVER 46 HOURS (2400MG/M2 EVE
     Route: 041
     Dates: start: 20191121, end: 20191122
  3. LANSOYL [Concomitant]
     Active Substance: MINERAL OIL
     Route: 048
  4. CREON [Concomitant]
     Active Substance: PANCRELIPASE AMYLASE\PANCRELIPASE LIPASE\PANCRELIPASE PROTEASE
     Route: 048
  5. ACIDE FOLINIQUE [Concomitant]
     Active Substance: LEUCOVORIN
     Indication: CHEMOTHERAPY TOXICITY ATTENUATION
     Dosage: FOLFIRINOX PROTOCOL, 400 MG/M2 TO J1
     Route: 041
     Dates: start: 20191121, end: 20191121
  6. XATRAL LP 10 MG, COMPRIME A LIBERATION PROLONGEE [Concomitant]
     Active Substance: ALFUZOSIN
     Route: 048
  7. OXALIPLATINE [Suspect]
     Active Substance: OXALIPLATIN
     Indication: DUCTAL ADENOCARCINOMA OF PANCREAS
     Dosage: FOLFIRINOX PROTOCOL 85MG/M2/D TO D1
     Route: 041
     Dates: start: 20191121, end: 20191121
  8. ABASAGLAR [Concomitant]
     Active Substance: INSULIN GLARGINE
     Route: 058
  9. ACTRAPID [Concomitant]
     Active Substance: INSULIN HUMAN
     Route: 058
  10. IRINOTECAN [Suspect]
     Active Substance: IRINOTECAN
     Dosage: FOLFIRINOX PROTOCOL 180 MG/M2/D TO D1
     Route: 041
     Dates: start: 20191121, end: 20191121
  11. MOPRAL [Concomitant]
     Active Substance: OMEPRAZOLE
     Route: 048

REACTIONS (2)
  - Diarrhoea [Recovered/Resolved]
  - Hypokalaemia [Recovered/Resolved]

NARRATIVE: CASE EVENT DATE: 20191121
